FAERS Safety Report 10716029 (Version 6)
Quarter: 2017Q1

REPORT INFORMATION
  Report Type: Spontaneous
  Country: US (occurrence: US)
  Receive Date: 20150116
  Receipt Date: 20170104
  Transmission Date: 20170428
  Serious: Yes (Hospitalization, Other)
  Sender: FDA-Public Use
  Company Number: US-PFIZER INC-2015019840

PATIENT
  Age: 61 Year
  Sex: Female

DRUGS (45)
  1. AMLODIPINE [Concomitant]
     Active Substance: AMLODIPINE BESYLATE
     Dosage: 5 MG, 1X/DAY, (TAKE 1 TABLET(S) EVERY DAY BY ORAL ROUTE)
     Route: 048
     Dates: start: 20160818
  2. CEPHALEXIN. [Concomitant]
     Active Substance: CEPHALEXIN
     Dosage: 500 MG, UNK
     Dates: start: 20160927
  3. CIPRO [Concomitant]
     Active Substance: CIPROFLOXACIN HYDROCHLORIDE
     Dosage: 250 MG, 2X/DAY, (TAKE 1 TABLET(S) EVERY 12 HOURS BY ORAL ROUTE)
     Route: 048
     Dates: start: 20161027
  4. NORCO [Concomitant]
     Active Substance: ACETAMINOPHEN\HYDROCODONE BITARTRATE
     Dosage: HYDROCODONE BITARTRATE 10 MG / PARACETAMOL 325 MG
     Dates: start: 20161009
  5. POTASSIUM CHLORIDE. [Concomitant]
     Active Substance: POTASSIUM CHLORIDE
     Dosage: 20 MEQ, 2X/DAY
     Route: 048
     Dates: start: 20161027
  6. VANCOMYCIN HCL [Concomitant]
     Active Substance: VANCOMYCIN HYDROCHLORIDE
     Dosage: 125 MG, UNK
     Dates: start: 20161027
  7. FLEXERIL [Concomitant]
     Active Substance: CYCLOBENZAPRINE HYDROCHLORIDE
     Indication: BACK PAIN
     Dosage: 10 MG, AS NEEDED, (1 TABLET(S) 3 TIMES A DAY BY ORAL ROUTE AS NEEDED)
     Route: 048
     Dates: start: 20160630
  8. ALPRAZOLAM. [Concomitant]
     Active Substance: ALPRAZOLAM
     Dosage: 0.25 MG, UNK
     Dates: start: 20161009
  9. EC-NAPROSYN [Concomitant]
     Active Substance: NAPROXEN
     Dosage: 500 MG, 2X/DAY, (TAKE 1 TABLET(S) TWICE A DAY BY ORAL ROUTE)
     Route: 048
     Dates: start: 20160315
  10. ROPINIROLE HCL [Concomitant]
     Active Substance: ROPINIROLE HYDROCHLORIDE
     Dosage: 1 MG, UNK
     Dates: start: 20161030
  11. ESTRADIOL. [Concomitant]
     Active Substance: ESTRADIOL
     Dosage: 1 MG, UNK
     Dates: start: 20160630
  12. ISOSORBIDE MONONITRATE. [Concomitant]
     Active Substance: ISOSORBIDE MONONITRATE
     Dosage: 30 MG, 1X/DAY, (TAKE 1 TABLET(S) EVERY DAY BY ORAL ROUTE)
     Route: 048
     Dates: start: 20160818
  13. MACRODANTIN [Concomitant]
     Active Substance: NITROFURANTOIN
     Dosage: 100 MG, 2X/DAY, (TAKE 1 CAPSULE(S) TWICE A DAY BY ORAL ROUTE FOR 7 DAYS)
     Route: 048
     Dates: start: 20161101
  14. ONDANSETRON HCL [Concomitant]
     Active Substance: ONDANSETRON HYDROCHLORIDE
     Dosage: 4 MG, UNK
     Dates: start: 20160922
  15. LORCET [Concomitant]
     Active Substance: ACETAMINOPHEN\HYDROCODONE BITARTRATE
     Dosage: UNK
  16. AMLODIPINE BESYLATE. [Concomitant]
     Active Substance: AMLODIPINE BESYLATE
     Dosage: 5 MG, UNK
     Dates: start: 20161030
  17. ASPIRIN 81 [Concomitant]
     Active Substance: ASPIRIN
     Dosage: 81 MG, 1X/DAY
     Route: 048
     Dates: start: 20160818
  18. CEPHALEXIN. [Concomitant]
     Active Substance: CEPHALEXIN
     Dosage: 500 MG, 3X/DAY, (1 TABLET(S) 3 TIMES A DAY BY ORAL ROUTE)
     Route: 048
     Dates: start: 20160927
  19. CHOLESTYRAMINE. [Concomitant]
     Active Substance: CHOLESTYRAMINE
     Dosage: 4 G, 3X/DAY, (TAKE 1 SCOOP(S) 3 TIMES A DAY BY ORAL ROUTE)
     Route: 048
     Dates: start: 20161004
  20. HYDROCODONE/ACETAMINOPHEN [Concomitant]
     Active Substance: ACETAMINOPHEN\HYDROCODONE
     Dosage: [HYDROCODONE 10 MG/ACETAMINOPHEN 325 MG]
     Dates: start: 20161010
  21. METOPROLOL TARTRATE. [Concomitant]
     Active Substance: METOPROLOL TARTRATE
     Dosage: 50 MG, 2X/DAY, (TAKE 1 TABLET(S) TWICE A DAY BY ORAL ROUTE)
     Route: 048
     Dates: start: 20160818
  22. NITROFURANTOIN MACROCRYSTALS [Concomitant]
     Active Substance: NITROFURANTOIN
     Dosage: 100 MG, UNK
     Dates: start: 20161101
  23. VANCOMYCIN [Concomitant]
     Active Substance: VANCOMYCIN
     Dosage: TAKE 0.5 CAPSULE(S) EVERY 6 HOURS
     Route: 048
     Dates: start: 20161011
  24. LYRICA [Suspect]
     Active Substance: PREGABALIN
     Indication: BACK PAIN
     Dosage: 300 MG, 2X/DAY, (TAKE 1 CAPSULE(S) TWICE A DAY BY ORAL ROUTE)
     Route: 048
     Dates: start: 20161104
  25. CEFTRIAXONE. [Concomitant]
     Active Substance: CEFTRIAXONE
     Dosage: 1 G, UNK, (TAKE BY INJECTION ROUTE)
     Dates: start: 20161102
  26. HYDROCODONE/ACETAMINOPHEN [Concomitant]
     Active Substance: ACETAMINOPHEN\HYDROCODONE
     Dosage: [HYDROCODONE 5 MG/ACETAMINOPHEN 325 MG]
     Dates: start: 20160909
  27. LOSARTAN. [Concomitant]
     Active Substance: LOSARTAN
     Dosage: 50 MG, 1X/DAY, (TAKE 1 TABLET(S) EVERY DAY BY ORAL ROUTE)
     Route: 048
     Dates: start: 20160630
  28. TRAMADOL. [Concomitant]
     Active Substance: TRAMADOL
     Dosage: 50 MG, UNK
     Dates: start: 20160630
  29. ZOFRAN [Concomitant]
     Active Substance: ONDANSETRON HYDROCHLORIDE
     Indication: NAUSEA
     Dosage: 4 MG 4 TIMES A DAY MAY TAKE 2 AS NEEDED
     Route: 048
     Dates: start: 20160922
  30. BREO ELLIPTA [Concomitant]
     Active Substance: FLUTICASONE FUROATE\VILANTEROL TRIFENATATE
     Dosage: 1 DF, 1X/DAY
     Route: 045
     Dates: start: 20160412
  31. CYCLOBENZAPRINE HCL [Concomitant]
     Active Substance: CYCLOBENZAPRINE HYDROCHLORIDE
     Dosage: 10 MG, UNK
     Dates: start: 20161030
  32. FUROSEMIDE. [Concomitant]
     Active Substance: FUROSEMIDE
     Indication: OEDEMA
     Dosage: 40 MG, AS NEEDED, (1 TABLET(S) TWICE A DAY BY ORAL ROUTE AS NEEDED)
     Route: 048
     Dates: start: 20160630
  33. POTASSIUM CHLORIDE. [Concomitant]
     Active Substance: POTASSIUM CHLORIDE
     Dosage: 10 MEQ, UNK
  34. PRILOSEC [Concomitant]
     Active Substance: OMEPRAZOLE MAGNESIUM
     Dosage: 20 MG, 1X/DAY, (TAKE 1 CAPSULE(S) EVERY DAY BY ORAL ROUTE)
     Route: 048
     Dates: start: 20160630
  35. REQUIP [Concomitant]
     Active Substance: ROPINIROLE HYDROCHLORIDE
     Dosage: 1 MG, 1X/DAY, (1 TABLET(S) EVERY DAY BY ORAL ROUTE AT BEDTIME)
     Route: 048
     Dates: start: 20160909
  36. LYRICA [Suspect]
     Active Substance: PREGABALIN
     Indication: NEURALGIA
     Dosage: 50 MG, UNK
     Route: 048
     Dates: start: 20161009
  37. LASIX [Concomitant]
     Active Substance: FUROSEMIDE
     Dosage: UNK
  38. CIPROFLOXACIN HCL [Concomitant]
     Active Substance: CIPROFLOXACIN HYDROCHLORIDE
     Dosage: 250 MG, UNK
     Dates: start: 20161027
  39. LOSARTAN POTASSIUM. [Concomitant]
     Active Substance: LOSARTAN POTASSIUM
     Dosage: 50 MG, UNK
     Dates: start: 20161030
  40. METOPROLOL TARTRATE. [Concomitant]
     Active Substance: METOPROLOL TARTRATE
     Dosage: 25 MG, UNK
     Dates: start: 20160712
  41. OMEPRAZOLE. [Concomitant]
     Active Substance: OMEPRAZOLE
     Dosage: 20 MG, UNK
     Dates: start: 20161102
  42. SYMBICORT [Concomitant]
     Active Substance: BUDESONIDE\FORMOTEROL FUMARATE DIHYDRATE
     Dosage: BUDESONIDE 160MCG/ FORMOTEROL FUMARATE DIHYDRATE 4.5MCG]( 2 PUFF(S) TWICE A DAY
     Route: 045
     Dates: start: 20160425
  43. ELAVIL [Concomitant]
     Active Substance: AMITRIPTYLINE HYDROCHLORIDE
     Dosage: UNK
  44. AMITRIPTYLINE [Concomitant]
     Active Substance: AMITRIPTYLINE
     Dosage: 25 MG, UNK
     Dates: start: 20160630
  45. VANCOCIN [Concomitant]
     Active Substance: VANCOMYCIN HYDROCHLORIDE
     Dosage: 125 MG, UNK
     Dates: start: 20161009, end: 20161019

REACTIONS (4)
  - Nasopharyngitis [Recovered/Resolved]
  - Withdrawal syndrome [Unknown]
  - Malaise [Unknown]
  - Bile duct obstruction [Unknown]
